FAERS Safety Report 19873233 (Version 1)
Quarter: 2021Q3

REPORT INFORMATION
  Report Type: Spontaneous
  Country: CN (occurrence: CN)
  Receive Date: 20210922
  Receipt Date: 20210922
  Transmission Date: 20211014
  Serious: Yes (Other)
  Sender: FDA-Public Use
  Company Number: CN-PFIZER INC-202101192275

PATIENT
  Age: 78 Year
  Sex: Male
  Weight: 51 kg

DRUGS (1)
  1. TAZOCIN [Suspect]
     Active Substance: PIPERACILLIN SODIUM\TAZOBACTAM SODIUM
     Indication: PNEUMONIA
     Dosage: 4.5 G, 2X/DAY (EVERY 12 HOURS)
     Route: 041
     Dates: start: 20210905, end: 20210905

REACTIONS (8)
  - Chest discomfort [Recovering/Resolving]
  - Dyspnoea [Recovering/Resolving]
  - Tachypnoea [Recovering/Resolving]
  - Condition aggravated [Recovering/Resolving]
  - Blood pressure increased [Unknown]
  - Oxygen saturation decreased [Unknown]
  - Heart rate increased [Recovering/Resolving]
  - Erythema [Recovering/Resolving]

NARRATIVE: CASE EVENT DATE: 20210905
